FAERS Safety Report 23006240 (Version 4)
Quarter: 2024Q4

REPORT INFORMATION
  Report Type: Report from Study
  Country: GB (occurrence: GB)
  Receive Date: 20230929
  Receipt Date: 20241111
  Transmission Date: 20250115
  Serious: Yes (Death, Hospitalization, Other)
  Sender: NOVARTIS
  Company Number: GB-002147023-NVSC2023GB209712

PATIENT
  Sex: Male

DRUGS (6)
  1. PLUVICTO [Suspect]
     Active Substance: LUTETIUM LU-177 VIPIVOTIDE TETRAXETAN
     Indication: Hormone-refractory prostate cancer
     Dosage: 7225 MBQ, CYCLIC (CYCLE 01)
     Route: 042
     Dates: start: 20230303, end: 20230303
  2. PLUVICTO [Suspect]
     Active Substance: LUTETIUM LU-177 VIPIVOTIDE TETRAXETAN
     Dosage: 7464 MBQ, CYCLIC (CYCLE 02)
     Route: 042
     Dates: start: 20230413, end: 20230413
  3. PLUVICTO [Suspect]
     Active Substance: LUTETIUM LU-177 VIPIVOTIDE TETRAXETAN
     Dosage: 7208 MBQ, CYCLIC (CYCLE 03)
     Route: 042
     Dates: start: 20230525, end: 20230525
  4. PLUVICTO [Suspect]
     Active Substance: LUTETIUM LU-177 VIPIVOTIDE TETRAXETAN
     Dosage: 7208 MBQ, CYCLIC (CYCLE 04)
     Route: 042
     Dates: start: 20230706, end: 20230706
  5. PLUVICTO [Suspect]
     Active Substance: LUTETIUM LU-177 VIPIVOTIDE TETRAXETAN
     Dosage: UNK (CYCLE 05)
     Route: 042
  6. PLUVICTO [Suspect]
     Active Substance: LUTETIUM LU-177 VIPIVOTIDE TETRAXETAN
     Dosage: UNK (CYCLE 06)
     Route: 042

REACTIONS (7)
  - Death [Fatal]
  - General physical health deterioration [Unknown]
  - Hormone-refractory prostate cancer [Unknown]
  - Malignant neoplasm progression [Unknown]
  - Blood alkaline phosphatase increased [Unknown]
  - Creatinine renal clearance decreased [Unknown]
  - Haemoglobin decreased [Unknown]
